FAERS Safety Report 9999155 (Version 1)
Quarter: 2014Q1

REPORT INFORMATION
  Report Type: Spontaneous
  Country: ES (occurrence: ES)
  Receive Date: 20140312
  Receipt Date: 20140312
  Transmission Date: 20141002
  Serious: Yes (Other)
  Sender: FDA-Public Use
  Company Number: ES-JNJFOC-20140306365

PATIENT
  Age: 83 Year
  Sex: Female

DRUGS (1)
  1. ZALDIAR [Suspect]
     Indication: PAIN
     Route: 048
     Dates: start: 20130531, end: 20130615

REACTIONS (3)
  - Hallucination, visual [Recovered/Resolved]
  - Urinary incontinence [Not Recovered/Not Resolved]
  - Hallucination, auditory [Recovered/Resolved]
